FAERS Safety Report 17402421 (Version 3)
Quarter: 2020Q1

REPORT INFORMATION
  Report Type: Spontaneous
  Country: US (occurrence: US)
  Receive Date: 20200211
  Receipt Date: 20200219
  Transmission Date: 20200409
  Serious: Yes (Hospitalization, Other)
  Sender: FDA-Public Use
  Company Number: US-SA-2020SA034535

PATIENT
  Age: 51 Year
  Sex: Female

DRUGS (1)
  1. DUPIXENT [Suspect]
     Active Substance: DUPILUMAB
     Indication: ASTHMA
     Dosage: 300 MG, QOW
     Route: 058
     Dates: start: 20190629

REACTIONS (7)
  - Anaphylactic reaction [Unknown]
  - Eye swelling [Unknown]
  - Pyrexia [Unknown]
  - Pain [Unknown]
  - Swelling face [Unknown]
  - Disorientation [Unknown]
  - Influenza like illness [Unknown]
